FAERS Safety Report 18007724 (Version 1)
Quarter: 2020Q3

REPORT INFORMATION
  Report Type: Spontaneous
  Country: US (occurrence: US)
  Receive Date: 20200710
  Receipt Date: 20200710
  Transmission Date: 20201103
  Serious: Yes (Other)
  Sender: FDA-Public Use
  Company Number: US-BIOVITRUM-2020US3578

PATIENT
  Age: 51 Year
  Sex: Male

DRUGS (2)
  1. ANAKINRA [Suspect]
     Active Substance: ANAKINRA
     Indication: FAMILIAL MEDITERRANEAN FEVER
     Route: 058
  2. ANAKINRA [Suspect]
     Active Substance: ANAKINRA
     Route: 058

REACTIONS (9)
  - Injection site swelling [Unknown]
  - Treatment failure [Unknown]
  - Urticaria [Unknown]
  - Dyspnoea [Unknown]
  - Angioedema [Unknown]
  - Pruritus [Unknown]
  - Familial mediterranean fever [Unknown]
  - Condition aggravated [Unknown]
  - Injection site pruritus [Unknown]
